FAERS Safety Report 13858565 (Version 1)
Quarter: 2017Q3

REPORT INFORMATION
  Report Type: Spontaneous
  Country: US (occurrence: US)
  Receive Date: 20170811
  Receipt Date: 20170811
  Transmission Date: 20171127
  Serious: No
  Sender: FDA-Public Use
  Company Number: US-TAKEDA-2017TUS016280

PATIENT
  Sex: Male

DRUGS (2)
  1. ENTYVIO [Suspect]
     Active Substance: VEDOLIZUMAB
     Indication: PRODUCT USED FOR UNKNOWN INDICATION
     Dosage: UNK
     Route: 065
     Dates: start: 201705
  2. NOVOCAINE [Suspect]
     Active Substance: PROCAINE
     Indication: DENTAL OPERATION
     Dosage: UNK
     Route: 065
     Dates: start: 20170731

REACTIONS (5)
  - Nausea [Not Recovered/Not Resolved]
  - Penile ulceration [Not Recovered/Not Resolved]
  - Dental operation [Unknown]
  - Hypersensitivity [Not Recovered/Not Resolved]
  - Dizziness [Not Recovered/Not Resolved]

NARRATIVE: CASE EVENT DATE: 20170731
